FAERS Safety Report 5497026-6 (Version None)
Quarter: 2007Q4

REPORT INFORMATION
  Report Type: 
  Country: None (occurrence: None)
  Receive Date: 20071025
  Receipt Date: 20071017
  Transmission Date: 20080405
  Serious: Yes (Other)
  Sender: FDA-Public Use
  Company Number: PHNU2007DE02353

PATIENT
  Age: 54 Year
  Sex: Female

DRUGS (1)
  1. TEGRETOL [Suspect]
     Indication: DEPRESSION
     Dosage: 300 MG/DAY
     Route: 048
     Dates: start: 20020101

REACTIONS (1)
  - MACULAR DEGENERATION [None]
